FAERS Safety Report 4684300-6 (Version None)
Quarter: 2005Q2

REPORT INFORMATION
  Report Type: 
  Country: None (occurrence: None)
  Receive Date: 20050531
  Receipt Date: 20040901
  Transmission Date: 20051028
  Serious: Yes (Other)
  Sender: FDA-Public Use
  Company Number: 200416592US

PATIENT
  Age: 50 Year
  Sex: Female

DRUGS (2)
  1. LOVENOX [Suspect]
     Dosage: 1 MG/KG Q12H SC
     Route: 058
  2. INTEGRILIN [Concomitant]

REACTIONS (1)
  - CORONARY ARTERY THROMBOSIS [None]
